FAERS Safety Report 7861073-7 (Version None)
Quarter: 2011Q4

REPORT INFORMATION
  Report Type: 
  Country: None (occurrence: None)
  Receive Date: 20111027
  Receipt Date: 20111018
  Transmission Date: 20120403
  Serious: Yes (Other)
  Sender: FDA-Public Use
  Company Number: CN-GLAXOSMITHKLINE-B0758231A

PATIENT
  Age: 53 Year
  Sex: Male

DRUGS (1)
  1. CEFTAZIDIME [Suspect]
     Indication: DIARRHOEA
     Dosage: 3G SINGLE DOSE
     Route: 042

REACTIONS (7)
  - PALPITATIONS [None]
  - DIZZINESS [None]
  - CHEST DISCOMFORT [None]
  - DYSPNOEA [None]
  - ANAPHYLACTIC SHOCK [None]
  - PRURITUS [None]
  - ERYTHEMA [None]
